FAERS Safety Report 23960359 (Version 4)
Quarter: 2024Q3

REPORT INFORMATION
  Report Type: Spontaneous
  Country: US (occurrence: US)
  Receive Date: 20240611
  Receipt Date: 20240819
  Transmission Date: 20241016
  Serious: No
  Sender: BRISTOL MYERS SQUIBB
  Company Number: US-BRISTOL-MYERS SQUIBB COMPANY-2024-093825

PATIENT
  Age: 34 Year
  Sex: Female

DRUGS (3)
  1. THALOMID [Suspect]
     Active Substance: THALIDOMIDE
     Indication: Laryngo-onycho-cutaneous syndrome
     Dates: start: 202302
  2. THALOMID [Suspect]
     Active Substance: THALIDOMIDE
     Dates: start: 20230216
  3. THALOMID [Suspect]
     Active Substance: THALIDOMIDE

REACTIONS (5)
  - Product dispensing error [Unknown]
  - Insurance issue [Unknown]
  - Therapy interrupted [Unknown]
  - Product dose omission issue [Unknown]
  - Off label use [Unknown]

NARRATIVE: CASE EVENT DATE: 20240610
